FAERS Safety Report 23772174 (Version 1)
Quarter: 2024Q2

REPORT INFORMATION
  Report Type: Spontaneous
  Country: TH (occurrence: TH)
  Receive Date: 20240423
  Receipt Date: 20240423
  Transmission Date: 20240716
  Serious: Yes (Hospitalization, Other)
  Sender: FDA-Public Use
  Company Number: TH-CHIESI-2024CHF02180

PATIENT
  Age: 56 Year
  Sex: Male

DRUGS (3)
  1. DEFERIPRONE [Suspect]
     Active Substance: DEFERIPRONE
     Indication: Hyperferritinaemia
     Dosage: 500 MILLIGRAM, QD
  2. DEFERIPRONE [Suspect]
     Active Substance: DEFERIPRONE
     Indication: Off label use
     Dosage: UNK
  3. DEFERIPRONE [Suspect]
     Active Substance: DEFERIPRONE
     Dosage: UNK

REACTIONS (4)
  - Bronchitis [Recovering/Resolving]
  - Bronchitis [Recovering/Resolving]
  - Anaphylactic shock [Recovering/Resolving]
  - Off label use [Recovered/Resolved]
